FAERS Safety Report 12469452 (Version 2)
Quarter: 2016Q3

REPORT INFORMATION
  Report Type: Report from Study
  Country: US (occurrence: US)
  Receive Date: 20160615
  Receipt Date: 20160914
  Transmission Date: 20161109
  Serious: Yes (Death, Hospitalization)
  Sender: FDA-Public Use
  Company Number: US-ACTELION-A-NJ2016-137430

PATIENT
  Age: 76 Year
  Sex: Female

DRUGS (3)
  1. OPSUMIT [Suspect]
     Active Substance: MACITENTAN
     Indication: PULMONARY HYPERTENSION
     Dosage: 10 MG, UNK
     Route: 048
     Dates: start: 20140211, end: 20160408
  2. DILTIAZEM. [Concomitant]
     Active Substance: DILTIAZEM
  3. AMIODARONE [Concomitant]
     Active Substance: AMIODARONE

REACTIONS (1)
  - Death [Fatal]
